FAERS Safety Report 19185489 (Version 4)
Quarter: 2021Q3

REPORT INFORMATION
  Report Type: Spontaneous
  Country: US (occurrence: US)
  Receive Date: 20210427
  Receipt Date: 20210730
  Transmission Date: 20211014
  Serious: No
  Sender: FDA-Public Use
  Company Number: US-PFIZER INC-2021410419

PATIENT
  Age: 50 Year
  Sex: Female
  Weight: 90.7 kg

DRUGS (8)
  1. IBRANCE [Suspect]
     Active Substance: PALBOCICLIB
     Indication: BREAST CANCER METASTATIC
     Dosage: 125 MG, CYCLIC
     Route: 048
     Dates: start: 20210221
  2. IBRANCE [Suspect]
     Active Substance: PALBOCICLIB
     Dosage: 125 MG, DAILY (DAILY FOR 21 DAYS)
     Route: 048
     Dates: start: 20210222
  3. FASLODEX [Concomitant]
     Active Substance: FULVESTRANT
     Dosage: UNK
  4. TYLENOL [Concomitant]
     Active Substance: ACETAMINOPHEN
     Dosage: 325 MG
  5. BIOTIN [Concomitant]
     Active Substance: BIOTIN
     Dosage: 10 MG
  6. ADVIL 12 HOUR [Concomitant]
     Active Substance: IBUPROFEN
     Dosage: 200 MG
  7. FASLODEX [Concomitant]
     Active Substance: FULVESTRANT
     Dosage: 250 MG (250 MG/5ML SYRENGE)
  8. IBRANCE [Suspect]
     Active Substance: PALBOCICLIB
     Indication: BREAST CANCER FEMALE
     Dosage: 125 MG, CYCLIC (1 DAILY FOR 21 DAYS)
     Route: 048
     Dates: start: 20210222

REACTIONS (7)
  - Tooth fracture [Unknown]
  - Bone pain [Unknown]
  - Gait disturbance [Unknown]
  - Alopecia [Unknown]
  - Depression [Unknown]
  - Mobility decreased [Unknown]
  - Myalgia [Unknown]

NARRATIVE: CASE EVENT DATE: 20210522
